FAERS Safety Report 9182361 (Version 1)
Quarter: 2012Q4

REPORT INFORMATION
  Report Type: 
  Country: US (occurrence: US)
  Receive Date: 20121030
  Receipt Date: 20121030
  Transmission Date: 20130627
  Serious: No
  Sender: FDA-Public Use
  Company Number: US-009507513-1210USA008114

PATIENT

DRUGS (1)
  1. VYTORIN [Suspect]
     Dosage: UNK

REACTIONS (1)
  - Hepatic function abnormal [Unknown]
